FAERS Safety Report 6980463-8 (Version None)
Quarter: 2010Q3

REPORT INFORMATION
  Report Type: 
  Country: None (occurrence: None)
  Receive Date: 20100914
  Receipt Date: 20100902
  Transmission Date: 20110219
  Serious: Yes (Hospitalization, Disabling, Other)
  Sender: FDA-Public Use
  Company Number: US-PFIZER INC-2010045821

PATIENT
  Sex: Male

DRUGS (9)
  1. CHANTIX [Suspect]
     Indication: SMOKING CESSATION THERAPY
     Dosage: STARTER PACK AND CONTINUING PACK
     Dates: start: 20070924, end: 20071101
  2. CARVEDILOL [Concomitant]
     Indication: CORONARY ARTERY DISEASE
     Dosage: UNK
     Dates: start: 20070101, end: 20090101
  3. CARVEDILOL [Concomitant]
     Indication: HYPERTENSION
  4. IMDUR [Concomitant]
     Indication: CHEST PAIN
     Dosage: UNK
     Dates: start: 20070101, end: 20090101
  5. PRINIVIL [Concomitant]
     Indication: HYPERTENSION
     Dosage: UNK
     Dates: start: 20070101, end: 20090101
  6. PLAVIX [Concomitant]
     Indication: CORONARY ARTERY DISEASE
     Dosage: UNK
     Dates: start: 20070101, end: 20090101
  7. ZOCOR [Concomitant]
     Indication: HYPERCHOLESTEROLAEMIA
     Dosage: UNK
     Dates: start: 20070101, end: 20090101
  8. RANEXA [Concomitant]
     Indication: CHEST PAIN
     Dosage: UNK
     Dates: start: 20070101, end: 20090101
  9. ACETYLSALICYLIC ACID [Concomitant]
     Indication: CORONARY ARTERY DISEASE
     Dosage: UNK
     Dates: start: 20070101, end: 20090101

REACTIONS (9)
  - ANXIETY [None]
  - CONVULSION [None]
  - DEPRESSION [None]
  - HALLUCINATION [None]
  - HOMICIDAL IDEATION [None]
  - INSOMNIA [None]
  - LOSS OF CONSCIOUSNESS [None]
  - MENTAL DISORDER [None]
  - SUICIDAL IDEATION [None]
